FAERS Safety Report 14122919 (Version 1)
Quarter: 2017Q4

REPORT INFORMATION
  Report Type: Spontaneous
  Country: US (occurrence: None)
  Receive Date: 20171024
  Receipt Date: 20171024
  Transmission Date: 20180321
  Serious: Yes (Hospitalization)
  Sender: FDA-Public Use
  Company Number: None

PATIENT
  Age: 63 Year
  Sex: Male

DRUGS (7)
  1. ROPINIROLE. [Concomitant]
     Active Substance: ROPINIROLE
  2. FENOFIBRATE. [Concomitant]
     Active Substance: FENOFIBRATE
  3. AFINITOR [Suspect]
     Active Substance: EVEROLIMUS
     Indication: CARCINOID SYNDROME
     Dosage: LOT NUMBER AND NDC % UNREADABLE
     Route: 048
  4. LOSTARTAN [Concomitant]
  5. TOUJEO [Concomitant]
     Active Substance: INSULIN GLARGINE
  6. PIOGLITAZONE. [Concomitant]
     Active Substance: PIOGLITAZONE
  7. TESTOSTERONE. [Concomitant]
     Active Substance: TESTOSTERONE

REACTIONS (2)
  - Pollakiuria [None]
  - Frequent bowel movements [None]
